FAERS Safety Report 5008469-9 (Version None)
Quarter: 2006Q2

REPORT INFORMATION
  Report Type: 
  Country: None (occurrence: None)
  Receive Date: 20060522
  Receipt Date: 20060522
  Transmission Date: 20061013
  Serious: Yes (Other)
  Sender: FDA-Public Use
  Company Number: None

PATIENT
  Sex: Female
  Weight: 81.6475 kg

DRUGS (2)
  1. CEPHALEXIN [Suspect]
     Indication: ARTHRITIS BACTERIAL
     Dosage: 500MG   4X/DAY   PO
     Route: 048
     Dates: start: 20060424, end: 20060509
  2. RIFAMPIN [Suspect]
     Indication: ARTHRITIS BACTERIAL
     Dosage: 300MG    2X/DAY    PO
     Route: 048
     Dates: start: 20060428, end: 20060512

REACTIONS (6)
  - CRYING [None]
  - DEPRESSION [None]
  - DISTURBANCE IN ATTENTION [None]
  - FEELING ABNORMAL [None]
  - MOOD ALTERED [None]
  - MOOD SWINGS [None]
